FAERS Safety Report 14917958 (Version 2)
Quarter: 2018Q4

REPORT INFORMATION
  Report Type: Spontaneous
  Country: FR (occurrence: FR)
  Receive Date: 20180521
  Receipt Date: 20181024
  Transmission Date: 20190204
  Serious: Yes (Other)
  Sender: FDA-Public Use
  Company Number: FR-MERCK KGAA-2048107

PATIENT
  Age: 63 Year
  Sex: Female

DRUGS (1)
  1. EUTHYROX [Suspect]
     Active Substance: LEVOTHYROXINE SODIUM
     Indication: PRODUCT USED FOR UNKNOWN INDICATION

REACTIONS (19)
  - Hypothyroidism [None]
  - Mood altered [None]
  - Blood thyroid stimulating hormone decreased [None]
  - Dizziness [None]
  - Irritability [None]
  - Thyroglobulin decreased [None]
  - Depersonalisation/derealisation disorder [None]
  - Hyperthyroidism [Recovered/Resolved]
  - Loss of personal independence in daily activities [None]
  - Thyroxine increased [Recovered/Resolved]
  - Myalgia [None]
  - Loss of libido [None]
  - Somnolence [None]
  - Arthralgia [None]
  - Blood thyroid stimulating hormone increased [Recovered/Resolved]
  - Alopecia [None]
  - Fatigue [None]
  - Antisocial behaviour [None]
  - Palpitations [None]

NARRATIVE: CASE EVENT DATE: 20170329
